FAERS Safety Report 18363292 (Version 2)
Quarter: 2020Q4

REPORT INFORMATION
  Report Type: Spontaneous
  Country: US (occurrence: US)
  Receive Date: 20201008
  Receipt Date: 20201105
  Transmission Date: 20210114
  Serious: No
  Sender: FDA-Public Use
  Company Number: US-ASTRAZENECA-2020SF25767

PATIENT
  Sex: Female
  Weight: 74.8 kg

DRUGS (1)
  1. BUDESONIDE AND FORMOTEROL [Suspect]
     Active Substance: BUDESONIDE\FORMOTEROL
     Indication: HYPERSENSITIVITY
     Dosage: 80/4.5 MCG TWO PUFFS TWICE DAILY
     Route: 055

REACTIONS (2)
  - Device delivery system issue [Unknown]
  - Product dose omission issue [Unknown]
